FAERS Safety Report 15968851 (Version 1)
Quarter: 2019Q1

REPORT INFORMATION
  Report Type: Spontaneous
  Country: US (occurrence: US)
  Receive Date: 20190215
  Receipt Date: 20190215
  Transmission Date: 20190418
  Serious: No
  Sender: FDA-Public Use
  Company Number: US-OTSUKA-2017_018664

PATIENT

DRUGS (6)
  1. DEFEROXAMINE [Concomitant]
     Active Substance: DEFEROXAMINE\DEFEROXAMINE MESYLATE
     Indication: CHELATION THERAPY
     Dosage: UNK
     Route: 065
  2. BUSULFAN. [Suspect]
     Active Substance: BUSULFAN
     Dosage: 30 MG, UNK
     Route: 042
  3. BUSULFAN. [Suspect]
     Active Substance: BUSULFAN
     Dosage: 30 MG, UNK
     Route: 042
  4. BUSULFAN. [Suspect]
     Active Substance: BUSULFAN
     Dosage: 30.4 MG, UNK
     Route: 042
  5. DEFERASIROX. [Concomitant]
     Active Substance: DEFERASIROX
     Indication: CHELATION THERAPY
     Dosage: UNK
     Route: 065
  6. BUSULFAN. [Suspect]
     Active Substance: BUSULFAN
     Indication: STEM CELL TRANSPLANT
     Dosage: 82 MG, UNK
     Route: 042

REACTIONS (1)
  - Drug clearance decreased [Unknown]
